FAERS Safety Report 10602694 (Version 1)
Quarter: 2014Q4

REPORT INFORMATION
  Report Type: Spontaneous
  Country: FR (occurrence: FR)
  Receive Date: 20141124
  Receipt Date: 20141124
  Transmission Date: 20150529
  Serious: Yes (Other)
  Sender: FDA-Public Use
  Company Number: FR-GLAXOSMITHKLINE-FR2014GSK024187

PATIENT
  Age: 69 Year
  Sex: Male

DRUGS (6)
  1. DEXERYL (GLYCEROL + LIQUID PARAFFIN + PARAFFIN SOFT) [Concomitant]
  2. DESLORATADINE. [Suspect]
     Active Substance: DESLORATADINE
     Indication: PRODUCT USED FOR UNKNOWN INDICATION
     Dosage: UNK
     Dates: start: 201407
  3. DERMOVAL [Concomitant]
     Active Substance: CLOBETASOL
  4. DICLOFENAC [Concomitant]
     Active Substance: DICLOFENAC
  5. SORIATANE [Suspect]
     Active Substance: ACITRETIN
     Indication: SKIN DISORDER
     Dosage: 25 MG, QD
     Route: 048
     Dates: start: 201406
  6. PANTOPRAZOLE [Concomitant]
     Active Substance: PANTOPRAZOLE SODIUM

REACTIONS (1)
  - Erectile dysfunction [Not Recovered/Not Resolved]

NARRATIVE: CASE EVENT DATE: 201407
